FAERS Safety Report 5897725-8 (Version None)
Quarter: 2008Q3

REPORT INFORMATION
  Report Type: 
  Country: None (occurrence: None)
  Receive Date: 20080925
  Receipt Date: 20080917
  Transmission Date: 20090109
  Serious: Yes (Other)
  Sender: FDA-Public Use
  Company Number: PHBS2008JP05758

PATIENT
  Age: 6 Year
  Sex: Male

DRUGS (2)
  1. OCTREOTIDE ACETATE [Suspect]
     Indication: PANCREATITIS
     Dosage: 20 UG/KG PER DAY
     Route: 042
  2. ANTINEOPLASTIC AGENTS [Concomitant]
     Indication: NON-HODGKIN'S LYMPHOMA

REACTIONS (5)
  - ABDOMINAL PAIN [None]
  - AGRANULOCYTOSIS [None]
  - BLOOD AMYLASE INCREASED [None]
  - BLOOD CREATININE INCREASED [None]
  - LEUKOPENIA [None]
